FAERS Safety Report 20482181 (Version 2)
Quarter: 2022Q1

REPORT INFORMATION
  Report Type: Report from Study
  Country: US (occurrence: None)
  Receive Date: 20220216
  Receipt Date: 20220315
  Transmission Date: 20220424
  Serious: Yes (Hospitalization, Other)
  Sender: FDA-Public Use
  Company Number: US-ROCHE-3002902

PATIENT
  Age: 41 Year
  Sex: Female
  Weight: 108.86 kg

DRUGS (1)
  1. ATEZOLIZUMAB [Suspect]
     Active Substance: ATEZOLIZUMAB
     Indication: Alveolar soft part sarcoma
     Dosage: ATEZOLIZUMAB: 1200 MG (PEDIATRICS (}=2 TO {18YRS):15 MG/KG) IV D1?LAST ADMINISTERED DATE 04-NOV-2021
     Route: 041
     Dates: start: 20210406

REACTIONS (3)
  - Seizure [Not Recovered/Not Resolved]
  - Glucose tolerance impaired [Unknown]
  - Hyperglycaemia [Unknown]

NARRATIVE: CASE EVENT DATE: 20211115
